FAERS Safety Report 5213748-6 (Version None)
Quarter: 2007Q1

REPORT INFORMATION
  Report Type: 
  Country: None (occurrence: None)
  Receive Date: 20070119
  Receipt Date: 20070109
  Transmission Date: 20070707
  Serious: Yes (Hospitalization)
  Sender: FDA-Public Use
  Company Number: US-PFIZER INC-2007001052

PATIENT
  Sex: Female
  Weight: 98.4 kg

DRUGS (11)
  1. INHALED HUMAN INSULIN [Suspect]
     Indication: DIABETES MELLITUS NON-INSULIN-DEPENDENT
     Dosage: DAILY DOSE:45MG-FREQ:DAILY
     Route: 055
  2. TOPROL-XL [Concomitant]
     Route: 048
  3. LIPITOR [Concomitant]
     Route: 048
     Dates: start: 19850101
  4. NORVASC [Concomitant]
     Route: 048
     Dates: start: 19880101
  5. ACETAMINOPHEN [Concomitant]
     Route: 048
     Dates: start: 20060316
  6. ASPIRIN [Concomitant]
     Route: 048
     Dates: start: 20061103
  7. PROTONIX [Concomitant]
     Route: 048
     Dates: start: 20061103
  8. NITROGLYCERIN [Concomitant]
     Route: 060
     Dates: start: 20061103
  9. ALBUTEROL [Concomitant]
     Dosage: TEXT:1-2 PUFFS-FREQ:AS NEEDED
     Route: 055
     Dates: start: 20051110
  10. GLUCOPHAGE [Concomitant]
     Route: 048
     Dates: start: 19800101
  11. LANTUS [Concomitant]
     Route: 058
     Dates: start: 19950101

REACTIONS (1)
  - ANGINA UNSTABLE [None]
